FAERS Safety Report 8599654 (Version 3)
Quarter: 2012Q4

REPORT INFORMATION
  Report Type: 
  Country: US (occurrence: US)
  Receive Date: 20120605
  Receipt Date: 20121212
  Transmission Date: 20130627
  Serious: Yes (Disabling, Other)
  Sender: FDA-Public Use
  Company Number: US-CELGENEUS-163-21880-12053637

PATIENT
  Sex: Female

DRUGS (6)
  1. REVLIMID [Suspect]
     Indication: MULTIPLE MYELOMA
     Dosage: 25 Milligram
     Route: 048
     Dates: start: 20100729
  2. REVLIMID [Suspect]
     Dosage: 10 Gram
     Route: 048
     Dates: start: 20111107
  3. CLONAZEPAM [Concomitant]
     Indication: DRUG USE FOR UNKNOWN INDICATION
     Route: 065
  4. COUMADIN [Concomitant]
     Indication: DRUG USE FOR UNKNOWN INDICATION
     Route: 065
  5. DEXAMETHASONE [Concomitant]
     Indication: DRUG USE FOR UNKNOWN INDICATION
     Dosage: 2 Milligram
     Route: 065
  6. REMERON [Concomitant]
     Indication: DRUG USE FOR UNKNOWN INDICATION
     Dosage: 15 Milligram
     Route: 065

REACTIONS (3)
  - Gastric volvulus [Unknown]
  - Activities of daily living impaired [Not Recovered/Not Resolved]
  - Gait disturbance [Not Recovered/Not Resolved]
